FAERS Safety Report 4390695-3 (Version None)
Quarter: 2004Q2

REPORT INFORMATION
  Report Type: 
  Country: None (occurrence: None)
  Receive Date: 20040630
  Receipt Date: 20040617
  Transmission Date: 20050107
  Serious: Yes (Death, Other)
  Sender: FDA-Public Use
  Company Number: 163-20785-04060032

PATIENT
  Age: 72 Year
  Sex: Male

DRUGS (2)
  1. THALOMID [Suspect]
     Indication: MYELOFIBROSIS
     Dosage: 50 MG, DAILY, ORAL
     Route: 048
     Dates: start: 20040504
  2. PREDNISONE TAB [Suspect]
     Indication: MYELOFIBROSIS
     Dates: start: 20040504

REACTIONS (1)
  - THROMBOSIS [None]
